FAERS Safety Report 6859050-8 (Version None)
Quarter: 2010Q3

REPORT INFORMATION
  Report Type: 
  Country: None (occurrence: None)
  Receive Date: 20100719
  Receipt Date: 20080226
  Transmission Date: 20110219
  Serious: Yes (Other)
  Sender: FDA-Public Use
  Company Number: US-PFIZER INC-2008017441

PATIENT
  Sex: Female
  Weight: 50.9 kg

DRUGS (20)
  1. CHANTIX [Suspect]
     Indication: SMOKING CESSATION THERAPY
     Dates: start: 20080218
  2. NEURONTIN [Concomitant]
  3. ESTRADIOL [Concomitant]
  4. OXYCODONE HCL [Concomitant]
  5. LORAZEPAM [Concomitant]
  6. LIDOCAINE [Concomitant]
  7. CARISOPRODOL [Concomitant]
  8. LUNESTA [Concomitant]
  9. ASACOL [Concomitant]
  10. REMERON [Concomitant]
  11. CLOBETASOL PROPIONATE [Concomitant]
  12. FLONASE [Concomitant]
  13. NYSTATIN [Concomitant]
  14. GUAIFENESIN [Concomitant]
  15. TRAZODONE HYDROCHLORIDE [Concomitant]
  16. CYANOCOBALAMIN [Concomitant]
  17. TESTOSTERONE [Concomitant]
  18. WELCHOL [Concomitant]
  19. DIFLUCAN [Concomitant]
  20. ALL OTHER THERAPEUTIC PRODUCTS [Concomitant]

REACTIONS (6)
  - ANXIETY [None]
  - DEPRESSION [None]
  - FEELING OF DESPAIR [None]
  - MICTURITION URGENCY [None]
  - NAUSEA [None]
  - SLEEP DISORDER [None]
